FAERS Safety Report 26182772 (Version 1)
Quarter: 2025Q4

REPORT INFORMATION
  Report Type: Report from Study
  Country: US (occurrence: US)
  Receive Date: 20251221
  Receipt Date: 20251221
  Transmission Date: 20260117
  Serious: Yes (Other)
  Sender: ALEXION PHARMACEUTICALS
  Company Number: US-ASTRAZENECA-202512NAM012423US

PATIENT
  Age: 37 Year
  Sex: Female

DRUGS (2)
  1. STRENSIQ [Suspect]
     Active Substance: ASFOTASE ALFA
     Indication: Phosphorus metabolism disorder
     Dosage: 2 MILLIGRAM/KILOGRAM, TIW
     Route: 065
  2. LYRICA [Concomitant]
     Active Substance: PREGABALIN
     Dosage: UNK
     Route: 065

REACTIONS (12)
  - Neuropathy peripheral [Unknown]
  - Multiple sclerosis relapse [Unknown]
  - Pain [Unknown]
  - Peripheral coldness [Unknown]
  - Night sweats [Unknown]
  - Premenstrual dysphoric disorder [Unknown]
  - Dysmenorrhoea [Unknown]
  - Tendonitis [Unknown]
  - Fibromyalgia [Unknown]
  - Crepitations [Unknown]
  - Arthralgia [Unknown]
  - Bedridden [Unknown]
